FAERS Safety Report 25996584 (Version 1)
Quarter: 2025Q4

REPORT INFORMATION
  Report Type: Report from Study
  Country: US (occurrence: US)
  Receive Date: 20251104
  Receipt Date: 20251104
  Transmission Date: 20260118
  Serious: Yes (Other)
  Sender: ABBVIE
  Company Number: US-ABBVIE-6526000

PATIENT
  Sex: Male

DRUGS (2)
  1. RINVOQ [Suspect]
     Active Substance: UPADACITINIB
     Indication: Crohn^s disease
     Dosage: STRENGTH-45MG
     Route: 048
     Dates: start: 202411
  2. RINVOQ [Suspect]
     Active Substance: UPADACITINIB
     Indication: Crohn^s disease
     Dosage: STRENGTH-30MG
     Route: 048
     Dates: start: 202501, end: 20250930

REACTIONS (3)
  - Lymphadenopathy [Unknown]
  - Unevaluable event [Not Recovered/Not Resolved]
  - Product use issue [Unknown]
